FAERS Safety Report 7420852-0 (Version None)
Quarter: 2011Q2

REPORT INFORMATION
  Report Type: 
  Country: None (occurrence: None)
  Receive Date: 20110418
  Receipt Date: 20110405
  Transmission Date: 20111010
  Serious: Yes (Disabling)
  Sender: FDA-Public Use
  Company Number: PHHY2011US23149

PATIENT
  Sex: Female

DRUGS (4)
  1. VITAMIN D [Concomitant]
     Indication: OSTEOPOROSIS
     Dosage: 2000 MG, BID
     Route: 048
  2. ADVIL LIQUI-GELS [Concomitant]
  3. RECLAST [Suspect]
     Indication: OSTEOPOROSIS
     Dosage: 5 MG/ ML ONCE 30 MIN
     Route: 042
     Dates: start: 20110218
  4. CALCIUM [Concomitant]
     Indication: OSTEOPOROSIS
     Dosage: 600 MG, BID

REACTIONS (11)
  - ARTHRALGIA [None]
  - PAIN IN EXTREMITY [None]
  - MYALGIA [None]
  - VISION BLURRED [None]
  - BONE PAIN [None]
  - MUSCULOSKELETAL PAIN [None]
  - PARAESTHESIA [None]
  - PAIN [None]
  - GROIN PAIN [None]
  - VISUAL IMPAIRMENT [None]
  - MUSCULAR WEAKNESS [None]
